FAERS Safety Report 5229324-5 (Version None)
Quarter: 2007Q1

REPORT INFORMATION
  Report Type: 
  Country: None (occurrence: None)
  Receive Date: 20070205
  Receipt Date: 20070202
  Transmission Date: 20070707
  Serious: Yes (Other)
  Sender: FDA-Public Use
  Company Number: US-MERCK-0608USA00721

PATIENT
  Age: 86 Year
  Sex: Female

DRUGS (5)
  1. FOSAMAX [Suspect]
     Indication: BONE DENSITY DECREASED
     Route: 048
     Dates: start: 20040101, end: 20060701
  2. CARDIZEM [Concomitant]
     Route: 065
  3. MICARDIS [Concomitant]
     Route: 065
  4. LIPITOR [Concomitant]
     Route: 065
  5. IMDUR [Concomitant]
     Route: 065

REACTIONS (2)
  - GINGIVAL INFECTION [None]
  - JAW FRACTURE [None]
